FAERS Safety Report 8511943-1 (Version None)
Quarter: 2012Q2

REPORT INFORMATION
  Report Type: 
  Country: None (occurrence: None)
  Receive Date: 20120405
  Receipt Date: 20080822
  Transmission Date: 20120825
  Serious: Yes (Hospitalization, Disabling)
  Sender: FDA-Public Use
  Company Number: PHEH2008US04793

PATIENT
  Age: 80 Year
  Sex: Female
  Weight: 35 kg

DRUGS (5)
  1. RECLAST [Suspect]
     Indication: OSTEOPOROSIS
     Dosage: 5 MG, ONCE/SINGLE, INFUSION
     Dates: start: 20080311
  2. NEXIUM [Concomitant]
  3. NADOLOL [Concomitant]
  4. XANAX [Concomitant]
  5. PRINIVIL [Concomitant]

REACTIONS (6)
  - BACK PAIN [None]
  - FATIGUE [None]
  - MYALGIA [None]
  - MUSCULOSKELETAL PAIN [None]
  - CHEST PAIN [None]
  - PAIN [None]
